FAERS Safety Report 14360578 (Version 1)
Quarter: 2018Q1

REPORT INFORMATION
  Report Type: Spontaneous
  Country: RO (occurrence: RO)
  Receive Date: 20180106
  Receipt Date: 20180106
  Transmission Date: 20180509
  Serious: Yes (Other)
  Sender: FDA-Public Use
  Company Number: RO-AUROBINDO-AUR-APL-2017-47117

PATIENT

DRUGS (5)
  1. SERTRALINE [Suspect]
     Active Substance: SERTRALINE HYDROCHLORIDE
     Dosage: 50 MG/DAY ()
  2. SERTRALINE [Suspect]
     Active Substance: SERTRALINE HYDROCHLORIDE
     Indication: DEPRESSION
     Dosage: 25 MG, PER DAY
  3. SERTRALINE [Suspect]
     Active Substance: SERTRALINE HYDROCHLORIDE
     Dosage: 25 MG/DAY FOR THE FIRST 4 DAYS ()
     Route: 048
  4. SERTRALINE [Suspect]
     Active Substance: SERTRALINE HYDROCHLORIDE
     Dosage: 25 MG INTHE FIRST 4 DAYS AND THEN 50 MG PER DAY ()
     Route: 048
  5. SERTRALINE [Suspect]
     Active Substance: SERTRALINE HYDROCHLORIDE
     Indication: MAJOR DEPRESSION
     Dosage: 50 MG, PER DAY

REACTIONS (7)
  - Anxiety [Recovered/Resolved]
  - Agitation [Recovered/Resolved]
  - Drug ineffective [Recovered/Resolved]
  - Psychotic symptom [Recovered/Resolved]
  - Hallucination, auditory [Recovered/Resolved]
  - Disturbance in attention [Recovered/Resolved]
  - Psychotic disorder [Recovered/Resolved]
